FAERS Safety Report 4495202-2 (Version None)
Quarter: 2004Q4

REPORT INFORMATION
  Report Type: 
  Country: None (occurrence: None)
  Receive Date: 20041103
  Receipt Date: 20041020
  Transmission Date: 20050328
  Serious: Yes (Hospitalization)
  Sender: FDA-Public Use
  Company Number: CERZ-10688

PATIENT
  Age: 53 Year
  Sex: Female
  Weight: 72.7 kg

DRUGS (2)
  1. CEREZYME [Suspect]
     Indication: GAUCHER'S DISEASE
     Dosage: 35 U/KG Q2WKS IV
     Route: 042
     Dates: start: 19961217
  2. UNSPECIFIED LIPID LOWERING AGENT [Suspect]
     Indication: HYPERLIPIDAEMIA
     Dates: end: 20040901

REACTIONS (2)
  - HEPATIC FUNCTION ABNORMAL [None]
  - HYPONATRAEMIA [None]
